FAERS Safety Report 7546292-1 (Version None)
Quarter: 2011Q2

REPORT INFORMATION
  Report Type: 
  Country: None (occurrence: None)
  Receive Date: 20110614
  Receipt Date: 20040428
  Transmission Date: 20111010
  Serious: Yes (Death, Other)
  Sender: FDA-Public Use
  Company Number: PHFR2004GB01582

PATIENT
  Sex: Male

DRUGS (6)
  1. VALPROATE SODIUM [Concomitant]
     Indication: MOOD SWINGS
     Dosage: 1000MG/DAY
  2. FERROUS SULFATE TAB [Concomitant]
     Indication: ANAEMIA
     Dosage: 200MG/DAY
  3. CIMETIDINE [Concomitant]
     Indication: GASTRITIS
     Dosage: 800MG/DAY
  4. CLOZAPINE [Suspect]
     Indication: SCHIZOPHRENIA
     Dosage: 450MG/DAY
     Route: 048
     Dates: start: 19980409
  5. ASPIRIN [Concomitant]
     Indication: HEMIPARESIS
     Dosage: 75MG/DAY
  6. HYOSCINE HYDROBROMIDE [Concomitant]
     Indication: SALIVARY HYPERSECRETION
     Dosage: 300UG/DAY

REACTIONS (4)
  - MENINGIOMA MALIGNANT [None]
  - METASTASES TO LUNG [None]
  - WHITE BLOOD CELL COUNT INCREASED [None]
  - NEUTROPHIL COUNT INCREASED [None]
